FAERS Safety Report 12723360 (Version 1)
Quarter: 2016Q3

REPORT INFORMATION
  Report Type: Other
  Country: GB (occurrence: GB)
  Receive Date: 20160908
  Receipt Date: 20160908
  Transmission Date: 20161109
  Serious: Yes (Congenital Anomaly)
  Sender: FDA-Public Use
  Company Number: GB-LUPIN PHARMACEUTICALS INC.-E2B_00006072

PATIENT
  Sex: 0

DRUGS (2)
  1. OLANZAPINE. [Suspect]
     Active Substance: OLANZAPINE
     Indication: MENTAL DISORDER
     Dosage: LONG TERM PRESCRIPTION
     Route: 064
     Dates: start: 2003
  2. SERTRALINE [Suspect]
     Active Substance: SERTRALINE HYDROCHLORIDE
     Indication: DEPRESSION
     Dosage: LONG TERM PRESCRIPTION.
     Route: 064
     Dates: start: 2013

REACTIONS (4)
  - Intestinal atresia [Unknown]
  - Foetal exposure during pregnancy [Unknown]
  - Spine malformation [Unknown]
  - Limb malformation [Unknown]

NARRATIVE: CASE EVENT DATE: 201606
